FAERS Safety Report 16431890 (Version 1)
Quarter: 2019Q2

REPORT INFORMATION
  Report Type: Spontaneous
  Country: AT (occurrence: AT)
  Receive Date: 20190614
  Receipt Date: 20190614
  Transmission Date: 20190711
  Serious: Yes (Death, Hospitalization)
  Sender: FDA-Public Use
  Company Number: AT-ELI_LILLY_AND_COMPANY-AT201906005056

PATIENT
  Age: 79 Year
  Sex: Male

DRUGS (3)
  1. GEMCITABINE HYDROCHLORIDE. [Suspect]
     Active Substance: GEMCITABINE HYDROCHLORIDE
     Indication: NON-SMALL CELL LUNG CANCER
     Dosage: UNK UNK, CYCLICAL
     Route: 065
     Dates: start: 201704, end: 201708
  2. CARBOPLATIN. [Suspect]
     Active Substance: CARBOPLATIN
     Indication: NON-SMALL CELL LUNG CANCER
     Dosage: UNK UNK, CYCLICAL
     Route: 065
     Dates: start: 201704, end: 201708
  3. NIVOLUMAB [Suspect]
     Active Substance: NIVOLUMAB
     Indication: NON-SMALL CELL LUNG CANCER
     Dosage: UNK, CYCLICAL
     Route: 065
     Dates: start: 201801

REACTIONS (2)
  - Respiratory failure [Fatal]
  - Pneumocystis jirovecii pneumonia [Fatal]
